FAERS Safety Report 6021804-8 (Version None)
Quarter: 2008Q4

REPORT INFORMATION
  Report Type: 
  Country: None (occurrence: None)
  Receive Date: 20081229
  Receipt Date: 20081218
  Transmission Date: 20090506
  Serious: Yes (Hospitalization)
  Sender: FDA-Public Use
  Company Number: US-AVENTIS-200818020US

PATIENT
  Sex: Female

DRUGS (19)
  1. LANTUS [Suspect]
     Route: 058
     Dates: end: 20080101
  2. LANTUS [Suspect]
     Dosage: DOSE: 80U AM, 50U PM
     Route: 058
     Dates: start: 20080101
  3. HYDRALAZINE HCL [Concomitant]
     Dosage: DOSE: UNK
  4. CLONIDINE [Concomitant]
     Dosage: DOSE: UNK
  5. COREG [Concomitant]
     Dosage: DOSE: UNK
  6. CARDIZEM [Concomitant]
     Dosage: DOSE: UNK
  7. ZANTAC [Concomitant]
     Dosage: DOSE: UNK
  8. NORVASC [Concomitant]
     Dosage: DOSE: UNK
  9. DIOVANE [Concomitant]
     Dosage: DOSE: UNK
  10. HUMALOG [Concomitant]
     Dosage: DOSE: SLIDING SCALE
  11. BACTRIM DS [Concomitant]
     Dosage: DOSE: UNK
  12. NEXIUM [Concomitant]
     Dosage: DOSE: UNK
  13. DILANTIN                           /00017401/ [Concomitant]
     Dosage: DOSE: UNK
  14. PRAVASTATIN [Concomitant]
     Dosage: DOSE: UNK
  15. COLACE [Concomitant]
     Dosage: DOSE: UNK
  16. ALBUTEROL [Concomitant]
     Dosage: DOSE: UNK
     Route: 055
  17. LASIX [Concomitant]
     Dosage: DOSE: UNK
  18. PROCRIT [Concomitant]
     Dosage: DOSE: UNK
  19. TEKTURNA [Concomitant]
     Dosage: DOSE: UNK

REACTIONS (4)
  - BLOOD GLUCOSE DECREASED [None]
  - BLOOD GLUCOSE INCREASED [None]
  - CARDIAC FAILURE CONGESTIVE [None]
  - DRUG INEFFECTIVE [None]
